FAERS Safety Report 6496875-5 (Version None)
Quarter: 2009Q4

REPORT INFORMATION
  Report Type: 
  Country: None (occurrence: None)
  Receive Date: 20091215
  Receipt Date: 20091209
  Transmission Date: 20100525
  Serious: Yes (Death, Other)
  Sender: FDA-Public Use
  Company Number: US-BIOGENIDEC-2009BI010901

PATIENT
  Age: 60 Year
  Sex: Female

DRUGS (1)
  1. TYSABRI [Suspect]
     Indication: MULTIPLE SCLEROSIS
     Route: 042
     Dates: start: 20090129, end: 20091001

REACTIONS (2)
  - METASTATIC SQUAMOUS CELL CARCINOMA [None]
  - MULTIPLE SCLEROSIS [None]
